FAERS Safety Report 5368670-1 (Version None)
Quarter: 2007Q2

REPORT INFORMATION
  Report Type: 
  Country: None (occurrence: None)
  Receive Date: 20070625
  Receipt Date: 20070302
  Transmission Date: 20071010
  Serious: No
  Sender: FDA-Public Use
  Company Number: US-BRISTOL-MYERS SQUIBB COMPANY-13698220

PATIENT
  Age: 6 Decade
  Sex: Female
  Weight: 91 kg

DRUGS (4)
  1. ORENCIA [Suspect]
  2. PREMPRO [Concomitant]
  3. MECLIZINE [Concomitant]
  4. NAPROXEN [Concomitant]

REACTIONS (1)
  - ORAL HERPES [None]
